FAERS Safety Report 22210593 (Version 2)
Quarter: 2023Q2

REPORT INFORMATION
  Report Type: Spontaneous
  Country: JP (occurrence: JP)
  Receive Date: 20230414
  Receipt Date: 20230525
  Transmission Date: 20230721
  Serious: Yes (Hospitalization, Disabling)
  Sender: FDA-Public Use
  Company Number: None

PATIENT
  Age: 51 Year
  Sex: Male
  Weight: 88.3 kg

DRUGS (9)
  1. RYBELSUS [Suspect]
     Active Substance: SEMAGLUTIDE
     Dosage: 7 MG, QD
     Route: 048
     Dates: start: 202210, end: 202303
  2. RYBELSUS [Suspect]
     Active Substance: SEMAGLUTIDE
     Indication: Type 2 diabetes mellitus
     Dosage: 3 MG, QD
     Route: 048
     Dates: start: 202202
  3. CARBOCYSTEINE [Concomitant]
     Active Substance: CARBOCYSTEINE
     Indication: Product used for unknown indication
     Dosage: 3TAB,TID
     Route: 048
  4. CILNIDIPINE [Concomitant]
     Active Substance: CILNIDIPINE
     Indication: Product used for unknown indication
     Dosage: 2TAB,QD
     Route: 048
  5. ROSUVASTATIN CALCIUM [Concomitant]
     Active Substance: ROSUVASTATIN CALCIUM
     Indication: Product used for unknown indication
     Dosage: 1TAB,QD
     Route: 048
  6. BIO-THREE [Concomitant]
     Active Substance: HERBALS
     Indication: Product used for unknown indication
     Dosage: 3TAB,TID
     Route: 048
  7. FEBUXOSTAT [Concomitant]
     Active Substance: FEBUXOSTAT
     Indication: Product used for unknown indication
     Dosage: 1TAB,QD
     Route: 048
  8. ALFACALCIDOL [Concomitant]
     Active Substance: ALFACALCIDOL
     Indication: Product used for unknown indication
     Dosage: 1TAB,QD
     Route: 048
  9. LUSEOGLIFLOZIN [Concomitant]
     Active Substance: LUSEOGLIFLOZIN
     Indication: Product used for unknown indication
     Dosage: 1TAB,QD
     Route: 048

REACTIONS (3)
  - Tubulointerstitial nephritis [Recovered/Resolved]
  - Prurigo [Recovered/Resolved]
  - Inappropriate schedule of product administration [Unknown]

NARRATIVE: CASE EVENT DATE: 20220201
